FAERS Safety Report 7881935-4 (Version None)
Quarter: 2011Q4

REPORT INFORMATION
  Report Type: 
  Country: None (occurrence: None)
  Receive Date: 20111101
  Receipt Date: 20110603
  Transmission Date: 20120403
  Serious: No
  Sender: FDA-Public Use
  Company Number: US-AMGEN-USASP2011021261

PATIENT
  Sex: Female

DRUGS (3)
  1. ORENCIA [Concomitant]
  2. REMICADE [Concomitant]
  3. ENBREL [Suspect]
     Indication: RHEUMATOID ARTHRITIS
     Dosage: 50 MG, QWK
     Dates: start: 20051101

REACTIONS (4)
  - INSOMNIA [None]
  - FATIGUE [None]
  - RHEUMATOID ARTHRITIS [None]
  - MUSCULAR WEAKNESS [None]
